FAERS Safety Report 4299823-1 (Version None)
Quarter: 2004Q1

REPORT INFORMATION
  Report Type: 
  Country: None (occurrence: None)
  Receive Date: 20040219
  Receipt Date: 20031125
  Transmission Date: 20041129
  Serious: Yes (Other)
  Sender: FDA-Public Use
  Company Number: WAES 0311USA02853

PATIENT
  Age: 74 Year
  Sex: Female

DRUGS (1)
  1. INVANZ [Suspect]
     Indication: URINARY TRACT INFECTION
     Dates: start: 20031113

REACTIONS (1)
  - CONVULSION [None]
